FAERS Safety Report 25996017 (Version 1)
Quarter: 2025Q4

REPORT INFORMATION
  Report Type: Report from Study
  Country: EU (occurrence: EU)
  Receive Date: 20251104
  Receipt Date: 20251104
  Transmission Date: 20260117
  Serious: Yes (Hospitalization, Other)
  Sender: PFIZER
  Company Number: EU-ORPHELIAP-202400220

PATIENT
  Age: 2 Year
  Sex: Male
  Weight: 10.6 kg

DRUGS (40)
  1. TOPOTECAN HYDROCHLORIDE [Suspect]
     Active Substance: TOPOTECAN HYDROCHLORIDE
     Indication: Neuroblastoma
     Dosage: CYCLE 1
     Dates: start: 20240416, end: 20240420
  2. TOPOTECAN HYDROCHLORIDE [Suspect]
     Active Substance: TOPOTECAN HYDROCHLORIDE
     Dosage: CYCLE 2
     Dates: start: 20240513, end: 20240517
  3. TOPOTECAN HYDROCHLORIDE [Suspect]
     Active Substance: TOPOTECAN HYDROCHLORIDE
     Dosage: CYCLE 3
     Dates: start: 20240611, end: 20240615
  4. TOPOTECAN HYDROCHLORIDE [Suspect]
     Active Substance: TOPOTECAN HYDROCHLORIDE
     Dosage: CYCLE 4
     Dates: start: 20240712, end: 20240716
  5. TOPOTECAN HYDROCHLORIDE [Suspect]
     Active Substance: TOPOTECAN HYDROCHLORIDE
     Dosage: CYCLE 5
     Dates: start: 20240813, end: 20240817
  6. TOPOTECAN HYDROCHLORIDE [Suspect]
     Active Substance: TOPOTECAN HYDROCHLORIDE
     Dosage: CYCLE 6
     Dates: start: 20240911, end: 20240915
  7. TOPOTECAN HYDROCHLORIDE [Suspect]
     Active Substance: TOPOTECAN HYDROCHLORIDE
     Dosage: CYCLE 7
     Dates: start: 20241010, end: 20241014
  8. TOPOTECAN HYDROCHLORIDE [Suspect]
     Active Substance: TOPOTECAN HYDROCHLORIDE
     Dosage: CYCLE 8
     Dates: start: 20241111, end: 20241115
  9. TOPOTECAN HYDROCHLORIDE [Suspect]
     Active Substance: TOPOTECAN HYDROCHLORIDE
     Dosage: CYCLE 9
     Dates: start: 20241230, end: 20250103
  10. TOPOTECAN HYDROCHLORIDE [Suspect]
     Active Substance: TOPOTECAN HYDROCHLORIDE
     Dosage: CYCLE 10
     Dates: start: 20250130, end: 20250203
  11. TOPOTECAN HYDROCHLORIDE [Suspect]
     Active Substance: TOPOTECAN HYDROCHLORIDE
     Dosage: CYCLE 11
     Dates: start: 20250303, end: 20250307
  12. TOPOTECAN HYDROCHLORIDE [Suspect]
     Active Substance: TOPOTECAN HYDROCHLORIDE
     Dosage: CYCLE 12
     Dates: start: 20250403, end: 20250407
  13. TOPOTECAN HYDROCHLORIDE [Suspect]
     Active Substance: TOPOTECAN HYDROCHLORIDE
     Dosage: CYCLE 13
     Dates: start: 20250505, end: 20250509
  14. TOPOTECAN HYDROCHLORIDE [Suspect]
     Active Substance: TOPOTECAN HYDROCHLORIDE
     Dosage: CYCLE 14
     Dates: start: 20250602, end: 20250606
  15. TOPOTECAN HYDROCHLORIDE [Suspect]
     Active Substance: TOPOTECAN HYDROCHLORIDE
     Dosage: CYCLE 15
     Dates: start: 20250630, end: 20250704
  16. TOPOTECAN HYDROCHLORIDE [Suspect]
     Active Substance: TOPOTECAN HYDROCHLORIDE
     Dosage: CYCLE 16
     Dates: start: 20250804, end: 20250808
  17. TOPOTECAN HYDROCHLORIDE [Suspect]
     Active Substance: TOPOTECAN HYDROCHLORIDE
     Dosage: CYCLE 17
     Dates: start: 20250901, end: 20250905
  18. TOPOTECAN HYDROCHLORIDE [Suspect]
     Active Substance: TOPOTECAN HYDROCHLORIDE
     Dosage: CYCLE 18
     Dates: start: 20250929, end: 20251003
  19. TEMOZOLOMIDE [Suspect]
     Active Substance: TEMOZOLOMIDE
     Indication: Neuroblastoma
     Dosage: CYCLE 1
     Dates: start: 20240416, end: 20240420
  20. TEMOZOLOMIDE [Suspect]
     Active Substance: TEMOZOLOMIDE
     Dosage: CYCLE 2
     Dates: start: 20240513, end: 20240517
  21. TEMOZOLOMIDE [Suspect]
     Active Substance: TEMOZOLOMIDE
     Dosage: CYCLE 3
     Dates: start: 20240611, end: 20240615
  22. TEMOZOLOMIDE [Suspect]
     Active Substance: TEMOZOLOMIDE
     Dosage: CYCLE 4
     Dates: start: 20240712, end: 20240716
  23. TEMOZOLOMIDE [Suspect]
     Active Substance: TEMOZOLOMIDE
     Dosage: CYCLE 5
     Dates: start: 20240813, end: 20240817
  24. TEMOZOLOMIDE [Suspect]
     Active Substance: TEMOZOLOMIDE
     Dosage: CYCLE 6
     Dates: start: 20240911, end: 20240915
  25. TEMOZOLOMIDE [Suspect]
     Active Substance: TEMOZOLOMIDE
     Dosage: CYCLE 7
     Dates: start: 20241010, end: 20241014
  26. TEMOZOLOMIDE [Suspect]
     Active Substance: TEMOZOLOMIDE
     Dosage: CYCLE 8
     Dates: start: 20241111, end: 20241115
  27. TEMOZOLOMIDE [Suspect]
     Active Substance: TEMOZOLOMIDE
     Dosage: CYCLE 9
     Dates: start: 20241230, end: 20250103
  28. TEMOZOLOMIDE [Suspect]
     Active Substance: TEMOZOLOMIDE
     Dosage: CYCLE 10
     Dates: start: 20250130, end: 20250203
  29. TEMOZOLOMIDE [Suspect]
     Active Substance: TEMOZOLOMIDE
     Dosage: CYCLE 11
     Dates: start: 20250303, end: 20250307
  30. TEMOZOLOMIDE [Suspect]
     Active Substance: TEMOZOLOMIDE
     Dosage: CYCLE 12
     Dates: start: 20250403, end: 20250407
  31. TEMOZOLOMIDE [Suspect]
     Active Substance: TEMOZOLOMIDE
     Dosage: CYCLE 13
     Dates: start: 20250505, end: 20250509
  32. TEMOZOLOMIDE [Suspect]
     Active Substance: TEMOZOLOMIDE
     Dosage: CYCLE 14
     Dates: start: 20250602, end: 20250606
  33. TEMOZOLOMIDE [Suspect]
     Active Substance: TEMOZOLOMIDE
     Dosage: CYCLE 15
     Dates: start: 20250630, end: 20250704
  34. TEMOZOLOMIDE [Suspect]
     Active Substance: TEMOZOLOMIDE
     Dosage: CYCLE 16
     Dates: start: 20250804, end: 20250808
  35. TEMOZOLOMIDE [Suspect]
     Active Substance: TEMOZOLOMIDE
     Dosage: CYCLE 17
     Dates: start: 20250901, end: 20250905
  36. TEMOZOLOMIDE [Suspect]
     Active Substance: TEMOZOLOMIDE
     Dosage: CYCLE 18
     Dates: start: 20250929, end: 20251003
  37. ONDANSETRON [Concomitant]
     Active Substance: ONDANSETRON
     Indication: Nausea
     Dosage: 2 MG, 2X/DAY (EVERY 12 H)
     Dates: start: 20240416
  38. DINUTUXIMAB [Concomitant]
     Active Substance: DINUTUXIMAB
     Indication: Neuroblastoma
     Dosage: CYCLE 1
     Dates: start: 20240416
  39. DINUTUXIMAB [Concomitant]
     Active Substance: DINUTUXIMAB
     Dosage: CYCLE 2
     Dates: start: 20240513
  40. DINUTUXIMAB [Concomitant]
     Active Substance: DINUTUXIMAB
     Dosage: CYCLE 3
     Dates: start: 20240611

REACTIONS (8)
  - Neutrophil count abnormal [Recovered/Resolved]
  - Neutropenia [Unknown]
  - Pyrexia [Unknown]
  - Rhinitis [Unknown]
  - Cough [Unknown]
  - Inappropriate schedule of product administration [Unknown]
  - Product prescribing issue [Unknown]
  - Product use issue [Unknown]

NARRATIVE: CASE EVENT DATE: 20240101
